FAERS Safety Report 14499169 (Version 1)
Quarter: 2018Q1

REPORT INFORMATION
  Report Type: Spontaneous
  Country: US (occurrence: US)
  Receive Date: 20180207
  Receipt Date: 20180207
  Transmission Date: 20180509
  Serious: No
  Sender: FDA-Public Use
  Company Number: US-JAZZ-2017-US-003632

PATIENT
  Sex: Female

DRUGS (6)
  1. BUPIVACAINE. [Suspect]
     Active Substance: BUPIVACAINE
     Dosage: 0.066 MG, QH
     Route: 037
     Dates: start: 20120702
  2. PRIALT [Suspect]
     Active Substance: ZICONOTIDE ACETATE
     Dosage: 0.013 ?G, QH
     Route: 037
     Dates: start: 20120702
  3. MORPHINE [Suspect]
     Active Substance: MORPHINE
     Dosage: 0.166 MG, QH
     Route: 037
     Dates: start: 20120702
  4. BUPIVACAINE. [Suspect]
     Active Substance: BUPIVACAINE
     Indication: PRODUCT USED FOR UNKNOWN INDICATION
     Dosage: 0.066 MG, QH
     Route: 037
     Dates: start: 20120601
  5. MORPHINE [Suspect]
     Active Substance: MORPHINE
     Indication: PRODUCT USED FOR UNKNOWN INDICATION
     Dosage: 0.166 MG, QH
     Route: 037
     Dates: start: 20120601
  6. PRIALT [Suspect]
     Active Substance: ZICONOTIDE ACETATE
     Indication: PAIN
     Dosage: 0.013 ?G, QH
     Route: 037
     Dates: start: 20120601, end: 201207

REACTIONS (1)
  - Somnolence [Recovered/Resolved]
